FAERS Safety Report 8423558-4 (Version None)
Quarter: 2012Q2

REPORT INFORMATION
  Report Type: 
  Country: None (occurrence: None)
  Receive Date: 20120608
  Receipt Date: 20120529
  Transmission Date: 20120825
  Serious: No
  Sender: FDA-Public Use
  Company Number: US-ASTRAZENECA-2011SE38538

PATIENT
  Age: 71 Year
  Sex: Female

DRUGS (1)
  1. NEXIUM [Suspect]
     Route: 048

REACTIONS (8)
  - BURNING SENSATION [None]
  - DYSPEPSIA [None]
  - INSOMNIA [None]
  - DRUG DOSE OMISSION [None]
  - GASTRIC DISORDER [None]
  - MUSCULAR WEAKNESS [None]
  - WRONG DRUG ADMINISTERED [None]
  - PAIN [None]
